FAERS Safety Report 4862533-3 (Version None)
Quarter: 2005Q4

REPORT INFORMATION
  Report Type: 
  Country: None (occurrence: None)
  Receive Date: 20051221
  Receipt Date: 20051212
  Transmission Date: 20060501
  Serious: Yes (Other)
  Sender: FDA-Public Use
  Company Number: US-GLAXOSMITHKLINE-A0586305A

PATIENT
  Sex: Female

DRUGS (1)
  1. PAXIL [Suspect]
     Indication: SLEEP DISORDER
     Route: 048

REACTIONS (7)
  - ANHEDONIA [None]
  - BEDRIDDEN [None]
  - CRYING [None]
  - DEPRESSION [None]
  - FATIGUE [None]
  - PERFORMANCE STATUS DECREASED [None]
  - SUICIDAL IDEATION [None]
